FAERS Safety Report 13241033 (Version 2)
Quarter: 2018Q1

REPORT INFORMATION
  Report Type: Report from Study
  Country: GB (occurrence: GB)
  Receive Date: 20170216
  Receipt Date: 20180202
  Transmission Date: 20180508
  Serious: Yes (Death)
  Sender: FDA-Public Use
  Company Number: GB-ASTRAZENECA-2017SE17297

PATIENT
  Age: 21179 Day
  Sex: Female

DRUGS (1)
  1. LYNPARZA [Suspect]
     Active Substance: OLAPARIB
     Dosage: 50.0MG UNKNOWN
     Route: 048

REACTIONS (2)
  - Drug dose omission [Unknown]
  - Death [Fatal]

NARRATIVE: CASE EVENT DATE: 20161226
